FAERS Safety Report 19231331 (Version 13)
Quarter: 2021Q3

REPORT INFORMATION
  Report Type: Report from Study
  Country: CO (occurrence: CO)
  Receive Date: 20210507
  Receipt Date: 20210818
  Transmission Date: 20211014
  Serious: Yes (Other)
  Sender: FDA-Public Use
  Company Number: CO-TAKEDA-CO202008391

PATIENT
  Age: 23 Year
  Sex: Female
  Weight: 54 kg

DRUGS (33)
  1. C1 INHIBITOR (HUMAN) [Suspect]
     Active Substance: HUMAN C1-ESTERASE INHIBITOR
     Dosage: 1000 DOSAGE FORM, 2/WEEK
     Route: 042
     Dates: start: 20170126
  2. C1 INHIBITOR (HUMAN) [Suspect]
     Active Substance: HUMAN C1-ESTERASE INHIBITOR
     Dosage: UNK
     Route: 042
     Dates: start: 20200313
  3. C1 INHIBITOR (HUMAN) [Suspect]
     Active Substance: HUMAN C1-ESTERASE INHIBITOR
     Dosage: UNK
     Route: 042
     Dates: start: 20200317
  4. C1 INHIBITOR (HUMAN) [Suspect]
     Active Substance: HUMAN C1-ESTERASE INHIBITOR
     Dosage: UNK
     Route: 065
     Dates: start: 20200331
  5. C1 INHIBITOR (HUMAN) [Suspect]
     Active Substance: HUMAN C1-ESTERASE INHIBITOR
     Dosage: UNK
     Route: 065
     Dates: start: 20200331
  6. C1 INHIBITOR (HUMAN) [Suspect]
     Active Substance: HUMAN C1-ESTERASE INHIBITOR
     Dosage: 1000 INTERNATIONAL UNIT, 2/WEEK
     Route: 042
     Dates: start: 20170116
  7. C1 INHIBITOR (HUMAN) [Suspect]
     Active Substance: HUMAN C1-ESTERASE INHIBITOR
     Dosage: 1000 DOSAGE FORM, 2/WEEK
     Route: 042
     Dates: start: 20170126
  8. C1 INHIBITOR (HUMAN) [Suspect]
     Active Substance: HUMAN C1-ESTERASE INHIBITOR
     Dosage: UNK
     Route: 065
     Dates: start: 20170416
  9. C1 INHIBITOR (HUMAN) [Suspect]
     Active Substance: HUMAN C1-ESTERASE INHIBITOR
     Dosage: UNK
     Route: 042
     Dates: start: 20200313
  10. C1 INHIBITOR (HUMAN) [Suspect]
     Active Substance: HUMAN C1-ESTERASE INHIBITOR
     Dosage: 1000 INTERNATIONAL UNIT, 2/WEEK
     Route: 042
     Dates: start: 20170116
  11. C1 INHIBITOR (HUMAN) [Suspect]
     Active Substance: HUMAN C1-ESTERASE INHIBITOR
     Dosage: 1000 INTERNATIONAL UNIT, 2/WEEK
     Route: 042
     Dates: start: 20170116
  12. C1 INHIBITOR (HUMAN) [Suspect]
     Active Substance: HUMAN C1-ESTERASE INHIBITOR
     Dosage: 100 INTERNATIONAL UNIT, 2/WEEK
     Route: 042
     Dates: start: 20170116
  13. C1 INHIBITOR (HUMAN) [Suspect]
     Active Substance: HUMAN C1-ESTERASE INHIBITOR
     Dosage: UNK
     Route: 065
     Dates: start: 20170416
  14. C1 INHIBITOR (HUMAN) [Suspect]
     Active Substance: HUMAN C1-ESTERASE INHIBITOR
     Dosage: UNK
     Route: 065
     Dates: start: 20170416
  15. C1 INHIBITOR (HUMAN) [Suspect]
     Active Substance: HUMAN C1-ESTERASE INHIBITOR
     Dosage: UNK
     Route: 042
     Dates: start: 20200310
  16. C1 INHIBITOR (HUMAN) [Suspect]
     Active Substance: HUMAN C1-ESTERASE INHIBITOR
     Dosage: UNK
     Route: 042
     Dates: start: 20200310
  17. C1 INHIBITOR (HUMAN) [Suspect]
     Active Substance: HUMAN C1-ESTERASE INHIBITOR
     Dosage: UNK
     Route: 042
     Dates: start: 20200317
  18. C1 INHIBITOR (HUMAN) [Suspect]
     Active Substance: HUMAN C1-ESTERASE INHIBITOR
     Dosage: UNK
     Route: 065
     Dates: start: 20200407
  19. C1 INHIBITOR (HUMAN) [Suspect]
     Active Substance: HUMAN C1-ESTERASE INHIBITOR
     Dosage: 1000 INTERNATIONAL UNIT, 2/WEEK
     Route: 042
     Dates: start: 20170116
  20. C1 INHIBITOR (HUMAN) [Suspect]
     Active Substance: HUMAN C1-ESTERASE INHIBITOR
     Dosage: 1000 INTERNATIONAL UNIT, 2/WEEK
     Route: 042
     Dates: start: 20170116
  21. C1 INHIBITOR (HUMAN) [Suspect]
     Active Substance: HUMAN C1-ESTERASE INHIBITOR
     Dosage: 100 INTERNATIONAL UNIT, 2/WEEK
     Route: 042
     Dates: start: 20170116
  22. C1 INHIBITOR (HUMAN) [Suspect]
     Active Substance: HUMAN C1-ESTERASE INHIBITOR
     Dosage: 1000 DOSAGE FORM, 2/WEEK
     Route: 042
     Dates: start: 20170126
  23. C1 INHIBITOR (HUMAN) [Suspect]
     Active Substance: HUMAN C1-ESTERASE INHIBITOR
     Dosage: UNK
     Route: 042
     Dates: start: 20200313
  24. C1 INHIBITOR (HUMAN) [Suspect]
     Active Substance: HUMAN C1-ESTERASE INHIBITOR
     Dosage: 1000 INTERNATIONAL UNIT, 2/WEEK
     Route: 042
     Dates: start: 20170116
  25. C1 INHIBITOR (HUMAN) [Suspect]
     Active Substance: HUMAN C1-ESTERASE INHIBITOR
     Dosage: 100 INTERNATIONAL UNIT, 2/WEEK
     Route: 042
     Dates: start: 20170116
  26. C1 INHIBITOR (HUMAN) [Suspect]
     Active Substance: HUMAN C1-ESTERASE INHIBITOR
     Indication: HEREDITARY ANGIOEDEMA
     Dosage: 1000 DOSAGE FORM, 2/WEEK
     Route: 042
     Dates: start: 20170106
  27. C1 INHIBITOR (HUMAN) [Suspect]
     Active Substance: HUMAN C1-ESTERASE INHIBITOR
     Dosage: UNK
     Route: 042
     Dates: start: 20200310
  28. C1 INHIBITOR (HUMAN) [Suspect]
     Active Substance: HUMAN C1-ESTERASE INHIBITOR
     Dosage: UNK
     Route: 065
     Dates: start: 20200331
  29. C1 INHIBITOR (HUMAN) [Suspect]
     Active Substance: HUMAN C1-ESTERASE INHIBITOR
     Dosage: UNK
     Route: 065
     Dates: start: 20200407
  30. C1 INHIBITOR (HUMAN) [Suspect]
     Active Substance: HUMAN C1-ESTERASE INHIBITOR
     Indication: HEREDITARY ANGIOEDEMA
     Dosage: 1000 DOSAGE FORM, 2/WEEK
     Route: 042
     Dates: start: 20170106
  31. C1 INHIBITOR (HUMAN) [Suspect]
     Active Substance: HUMAN C1-ESTERASE INHIBITOR
     Indication: HEREDITARY ANGIOEDEMA
     Dosage: 1000 DOSAGE FORM, 2/WEEK
     Route: 042
     Dates: start: 20170106
  32. C1 INHIBITOR (HUMAN) [Suspect]
     Active Substance: HUMAN C1-ESTERASE INHIBITOR
     Dosage: UNK
     Route: 042
     Dates: start: 20200317
  33. C1 INHIBITOR (HUMAN) [Suspect]
     Active Substance: HUMAN C1-ESTERASE INHIBITOR
     Dosage: UNK
     Route: 065
     Dates: start: 20200407

REACTIONS (22)
  - Muscular weakness [Unknown]
  - Malaise [Not Recovered/Not Resolved]
  - COVID-19 [Not Recovered/Not Resolved]
  - Influenza [Unknown]
  - Chills [Not Recovered/Not Resolved]
  - Diarrhoea [Not Recovered/Not Resolved]
  - Myalgia [Unknown]
  - Hypotension [Recovered/Resolved]
  - Vomiting [Recovering/Resolving]
  - Product administration interrupted [Unknown]
  - Poor quality sleep [Not Recovered/Not Resolved]
  - Hereditary angioedema [Recovered/Resolved]
  - Depression [Not Recovered/Not Resolved]
  - Fatigue [Not Recovered/Not Resolved]
  - Weight increased [Unknown]
  - Dyspnoea [Not Recovered/Not Resolved]
  - Crying [Not Recovered/Not Resolved]
  - Pyrexia [Not Recovered/Not Resolved]
  - Inappropriate schedule of product administration [Unknown]
  - Weight decreased [Unknown]
  - Heavy menstrual bleeding [Recovered/Resolved]
  - Nausea [Not Recovered/Not Resolved]

NARRATIVE: CASE EVENT DATE: 20200301
